FAERS Safety Report 24564255 (Version 4)
Quarter: 2025Q3

REPORT INFORMATION
  Report Type: Spontaneous
  Country: US (occurrence: US)
  Receive Date: 20241030
  Receipt Date: 20250918
  Transmission Date: 20251021
  Serious: Yes (Hospitalization)
  Sender: TEVA
  Company Number: US-TEVA-VS-3258594

PATIENT
  Age: 33 Year
  Sex: Female

DRUGS (1)
  1. TESTOSTERONE [Suspect]
     Active Substance: TESTOSTERONE
     Indication: Transgender hormonal therapy
     Dosage: DOSAGE: 200 MG/ML
     Route: 065
     Dates: start: 2009

REACTIONS (3)
  - Idiopathic intracranial hypertension [Recovering/Resolving]
  - Papilloedema [Unknown]
  - Cerebrospinal fluid leakage [Recovering/Resolving]
